FAERS Safety Report 11865465 (Version 1)
Quarter: 2015Q4

REPORT INFORMATION
  Report Type: Report from Study
  Country: US (occurrence: US)
  Receive Date: 20151223
  Receipt Date: 20151223
  Transmission Date: 20160305
  Serious: Yes (Other)
  Sender: FDA-Public Use
  Company Number: US-ARIAD PHARMACEUTICALS, INC-2015US004577

PATIENT

DRUGS (7)
  1. VALACYCLOVIR HYDROCHLORIDE. [Concomitant]
     Active Substance: VALACYCLOVIR HYDROCHLORIDE
     Indication: PRODUCT USED FOR UNKNOWN INDICATION
  2. BACTRIM DS [Concomitant]
     Active Substance: SULFAMETHOXAZOLE\TRIMETHOPRIM
     Indication: PRODUCT USED FOR UNKNOWN INDICATION
  3. LOVENOX [Concomitant]
     Active Substance: ENOXAPARIN SODIUM
     Indication: PRODUCT USED FOR UNKNOWN INDICATION
  4. ICLUSIG [Suspect]
     Active Substance: PONATINIB
     Indication: ACUTE MONOCYTIC LEUKAEMIA
     Dosage: 45 MG, QD
     Route: 048
     Dates: start: 20150223
  5. FOLIC ACID. [Concomitant]
     Active Substance: FOLIC ACID
     Indication: PRODUCT USED FOR UNKNOWN INDICATION
  6. ICLUSIG [Suspect]
     Active Substance: PONATINIB
     Dosage: 45 MG, QD
     Route: 048
  7. ALLOPURINOL. [Concomitant]
     Active Substance: ALLOPURINOL
     Indication: PRODUCT USED FOR UNKNOWN INDICATION

REACTIONS (26)
  - Liver function test abnormal [Unknown]
  - Transaminases increased [Unknown]
  - Fibrin D dimer increased [Unknown]
  - International normalised ratio increased [Unknown]
  - Chest pain [Unknown]
  - Off label use [Unknown]
  - Blood count abnormal [Recovered/Resolved]
  - Cough [Unknown]
  - Cellulitis [Unknown]
  - Erythema [Recovered/Resolved]
  - Pulmonary embolism [Unknown]
  - Dry mouth [Unknown]
  - Haemoptysis [Recovered/Resolved]
  - Arthralgia [Unknown]
  - Sputum discoloured [Recovered/Resolved]
  - Rhinovirus infection [Unknown]
  - Joint swelling [Recovered/Resolved]
  - Dry eye [Unknown]
  - Upper respiratory tract infection [Unknown]
  - Pulmonary infarction [Unknown]
  - Phlebitis [Unknown]
  - Back pain [Unknown]
  - Oedema peripheral [Unknown]
  - Rash erythematous [Recovered/Resolved]
  - Hyperhidrosis [Unknown]
  - Flank pain [Recovered/Resolved]
